FAERS Safety Report 7999218-0 (Version None)
Quarter: 2011Q4

REPORT INFORMATION
  Report Type: 
  Country: None (occurrence: None)
  Receive Date: 20111221
  Receipt Date: 20111207
  Transmission Date: 20120403
  Serious: Yes (Hospitalization)
  Sender: FDA-Public Use
  Company Number: GB-GILEAD-2011-0047113

PATIENT
  Age: 35 Year
  Sex: Male

DRUGS (1)
  1. ADEFOVIR DIPIVOXIL KIT [Suspect]
     Indication: HEPATITIS B

REACTIONS (21)
  - RENAL CYST [None]
  - BLOOD ALKALINE PHOSPHATASE INCREASED [None]
  - URINE PHOSPHORUS INCREASED [None]
  - MOVEMENT DISORDER [None]
  - EXOSTOSIS [None]
  - RENAL TUBULAR DISORDER [None]
  - BONE PAIN [None]
  - PAIN [None]
  - TELANGIECTASIA [None]
  - BONE DENSITY DECREASED [None]
  - HEPATITIS B E ANTIGEN [None]
  - OSTEOMALACIA [None]
  - ARTHRALGIA [None]
  - BLOOD PHOSPHORUS DECREASED [None]
  - PAIN IN EXTREMITY [None]
  - TENDERNESS [None]
  - ASTHENIA [None]
  - NEPHROCALCINOSIS [None]
  - ABASIA [None]
  - BLOOD CREATININE INCREASED [None]
  - INTERVERTEBRAL DISC DEGENERATION [None]
